FAERS Safety Report 8722640 (Version 3)
Quarter: 2012Q4

REPORT INFORMATION
  Report Type: 
  Country: US (occurrence: US)
  Receive Date: 20120814
  Receipt Date: 20121205
  Transmission Date: 20130627
  Serious: Yes (Other)
  Sender: FDA-Public Use
  Company Number: US-ROCHE-1065825

PATIENT
  Age: 23 Year
  Sex: Female
  Weight: 50.39 kg

DRUGS (3)
  1. ACCUTANE [Suspect]
     Indication: ACNE
     Route: 065
     Dates: start: 19951121, end: 19960510
  2. ACCUTANE [Suspect]
     Route: 065
     Dates: start: 19990105, end: 19990205
  3. BIRTH CONTROL (UNK INGREDIENTS) [Concomitant]

REACTIONS (7)
  - Colitis ulcerative [Unknown]
  - Inflammatory bowel disease [Unknown]
  - Depression [Unknown]
  - Intestinal obstruction [Unknown]
  - Irritable bowel syndrome [Not Recovered/Not Resolved]
  - Blood cholesterol increased [Recovered/Resolved]
  - Dry eye [Unknown]
